FAERS Safety Report 9195323 (Version 2)
Quarter: 2013Q3

REPORT INFORMATION
  Report Type: Spontaneous
  Country: US (occurrence: US)
  Receive Date: 20130328
  Receipt Date: 20130707
  Transmission Date: 20140515
  Serious: No
  Sender: FDA-Public Use
  Company Number: US-ALLERGAN-1302998US

PATIENT
  Age: 80 Year
  Sex: Female

DRUGS (4)
  1. LUMIGAN? 0.01% [Suspect]
     Indication: GLAUCOMA
     Dosage: 2 GTT, QHS
     Route: 047
     Dates: start: 201302
  2. AZOPT [Concomitant]
     Indication: GLAUCOMA
     Dosage: 1 GTT, BID
     Route: 047
  3. NORVASC                            /00972401/ [Concomitant]
     Indication: BLOOD PRESSURE
  4. COZAAR [Concomitant]
     Indication: BLOOD PRESSURE

REACTIONS (1)
  - Local swelling [Recovered/Resolved]
